FAERS Safety Report 5293157-4 (Version None)
Quarter: 2007Q2

REPORT INFORMATION
  Report Type: 
  Country: None (occurrence: None)
  Receive Date: 20070411
  Receipt Date: 20070404
  Transmission Date: 20071010
  Serious: Yes (Hospitalization)
  Sender: FDA-Public Use
  Company Number: 2007PK00515

PATIENT
  Age: 29924 Day
  Sex: Female
  Weight: 71 kg

DRUGS (23)
  1. ATACAND [Suspect]
     Indication: CORONARY ARTERY DISEASE
     Route: 048
     Dates: start: 20061004, end: 20061020
  2. ATACAND [Suspect]
     Indication: ATRIAL FIBRILLATION
     Route: 048
     Dates: start: 20061004, end: 20061020
  3. ATACAND [Suspect]
     Route: 048
     Dates: start: 20061020, end: 20061117
  4. ATACAND [Suspect]
     Route: 048
     Dates: start: 20061020, end: 20061117
  5. ATACAND [Suspect]
     Route: 048
     Dates: start: 20061117, end: 20061215
  6. ATACAND [Suspect]
     Route: 048
     Dates: start: 20061117, end: 20061215
  7. ATACAND [Suspect]
     Route: 048
     Dates: start: 20061215
  8. ATACAND [Suspect]
     Route: 048
     Dates: start: 20061215
  9. FUROSEMIDE [Concomitant]
  10. FUROSEMIDE [Concomitant]
     Dates: start: 20061004, end: 20061020
  11. FUROSEMIDE [Concomitant]
     Dates: start: 20061020, end: 20061117
  12. FUROSEMIDE [Concomitant]
     Dates: start: 20061117
  13. ENALAPRIL MALEATE [Concomitant]
  14. BISOPROLOL [Concomitant]
  15. BISOPROLOL [Concomitant]
     Dates: start: 20061004, end: 20061020
  16. BISOPROLOL [Concomitant]
     Dates: start: 20061020, end: 20061215
  17. BISOPROLOL [Concomitant]
     Dates: start: 20061215
  18. SPIROLONE [Concomitant]
  19. AMARYL [Concomitant]
  20. METFORMIN [Concomitant]
  21. SITROL [Concomitant]
  22. ISOSORBID MONONITRATE [Concomitant]
  23. THROMBO ASS [Concomitant]

REACTIONS (1)
  - HYPERTENSIVE CRISIS [None]
